FAERS Safety Report 4710009-6 (Version None)
Quarter: 2005Q3

REPORT INFORMATION
  Report Type: 
  Country: None (occurrence: None)
  Receive Date: 20050708
  Receipt Date: 20050630
  Transmission Date: 20060218
  Serious: Yes (Congenital Anomaly)
  Sender: FDA-Public Use
  Company Number: FR-ABBOTT-05P-056-0304811-00

PATIENT
  Sex: Male

DRUGS (7)
  1. DEPAKENE [Suspect]
     Indication: DRUG EXPOSURE DURING PREGNANCY
  2. CLOBAZAM [Suspect]
     Indication: DRUG EXPOSURE DURING PREGNANCY
  3. PHENYTOIN [Suspect]
     Indication: DRUG EXPOSURE DURING PREGNANCY
  4. PHENOBARBITAL SODIUM 100MG CAP [Suspect]
     Indication: DRUG EXPOSURE DURING PREGNANCY
  5. TIANEPTINE [Suspect]
     Indication: DRUG EXPOSURE DURING PREGNANCY
  6. MISOPROSTOL [Suspect]
     Indication: DRUG EXPOSURE DURING PREGNANCY
  7. MIFEPRISTONE [Suspect]
     Indication: DRUG EXPOSURE DURING PREGNANCY

REACTIONS (8)
  - CHYLOTHORAX [None]
  - CONGENITAL NOSE MALFORMATION [None]
  - CONGENITAL ORAL MALFORMATION [None]
  - DRUG EXPOSURE DURING PREGNANCY [None]
  - FOETAL GROWTH RETARDATION [None]
  - LOW SET EARS [None]
  - PREMATURE BABY [None]
  - SMALL FOR DATES BABY [None]
